FAERS Safety Report 22266759 (Version 2)
Quarter: 2023Q2

REPORT INFORMATION
  Report Type: Spontaneous
  Country: US (occurrence: None)
  Receive Date: 20230428
  Receipt Date: 20230509
  Transmission Date: 20230722
  Serious: No
  Sender: FDA-Public Use
  Company Number: 2023A077538

PATIENT
  Sex: Female
  Weight: 95.3 kg

DRUGS (1)
  1. SYMBICORT [Suspect]
     Active Substance: BUDESONIDE\FORMOTEROL FUMARATE DIHYDRATE
     Indication: Chronic obstructive pulmonary disease
     Dosage: 2 PUFFS TWICE DAILY
     Route: 055

REACTIONS (9)
  - Road traffic accident [Unknown]
  - Gait inability [Unknown]
  - General physical health deterioration [Unknown]
  - Malaise [Unknown]
  - Memory impairment [Unknown]
  - Weight increased [Unknown]
  - Accident [Unknown]
  - Product use issue [Unknown]
  - Product dose omission issue [Unknown]
